FAERS Safety Report 7348876-2 (Version None)
Quarter: 2011Q1

REPORT INFORMATION
  Report Type: 
  Country: None (occurrence: None)
  Receive Date: 20110314
  Receipt Date: 20110228
  Transmission Date: 20110831
  Serious: Yes (Hospitalization, Other)
  Sender: FDA-Public Use
  Company Number: ES-ELI_LILLY_AND_COMPANY-ES201103000013

PATIENT
  Sex: Male
  Weight: 106 kg

DRUGS (11)
  1. MST [Concomitant]
     Dosage: 30 MG, EVERY 12 HOURS
  2. PARACETAMOL [Concomitant]
     Indication: PAIN
     Dosage: 1 G, EVERY 8 HRS
     Route: 048
  3. SINVASTATINA [Concomitant]
     Indication: HYPERCHOLESTEROLAEMIA
     Dosage: UNK, DAILY (1/D)
     Route: 048
  4. EUTIROX [Concomitant]
     Indication: HYPOTHYROIDISM
     Dosage: UNK, DAILY (1/D)
     Route: 048
  5. NOLOTIL [Concomitant]
     Indication: PAIN
     Dosage: UNK, EVERY 8 HRS
     Route: 048
  6. ADIRO [Concomitant]
     Dosage: UNK, DAILY (1/D)
     Route: 048
  7. FORTEO [Suspect]
     Indication: OSTEOPOROSIS
     Dosage: 20 UG, DAILY (1/D)
     Route: 058
     Dates: start: 20091215
  8. LORAZEPAM [Concomitant]
     Indication: INSOMNIA
     Dosage: HALF TABLET UNK, UNKNOWN
     Route: 048
  9. ZYVOX [Concomitant]
     Indication: BACTERIAL INFECTION
     Dosage: 600 MG, EVERY 8 HRS
     Route: 061
  10. ENTOMOL [Concomitant]
     Dosage: HALF TABLET UNK, DAILY (1/D)
     Route: 048
  11. PERMIXON [Concomitant]
     Indication: BENIGN PROSTATIC HYPERPLASIA
     Dosage: UNK, DAILY (1/D)
     Route: 048

REACTIONS (3)
  - SKIN ULCER [None]
  - VASCULAR INSUFFICIENCY [None]
  - PSEUDOMONAS INFECTION [None]
